FAERS Safety Report 11434442 (Version 1)
Quarter: 2015Q3

REPORT INFORMATION
  Report Type: Spontaneous
  Country: US (occurrence: US)
  Receive Date: 20150831
  Receipt Date: 20150831
  Transmission Date: 20151125
  Serious: No
  Sender: FDA-Public Use
  Company Number: GXBR2015US001732

PATIENT
  Age: 59 Year
  Sex: Male
  Weight: 110.66 kg

DRUGS (3)
  1. DOCETAXEL HOSPIRA [Suspect]
     Active Substance: DOCETAXEL
     Indication: NON-SMALL CELL LUNG CANCER
     Dosage: UNK DF, UNK
     Route: 041
  2. DOCETAXEL. [Suspect]
     Active Substance: DOCETAXEL
     Indication: NON-SMALL CELL LUNG CANCER
     Dosage: UNK DF, UNK
     Route: 041
     Dates: start: 20150702
  3. NORMAL SALINE [Suspect]
     Active Substance: SODIUM CHLORIDE
     Indication: PROPHYLAXIS
     Dosage: UNK DF, UNK
     Route: 041
     Dates: start: 20150702

REACTIONS (2)
  - Erythema [Unknown]
  - Infusion site streaking [Unknown]

NARRATIVE: CASE EVENT DATE: 20150702
